FAERS Safety Report 24136031 (Version 2)
Quarter: 2024Q3

REPORT INFORMATION
  Report Type: Spontaneous
  Country: CA (occurrence: CA)
  Receive Date: 20240725
  Receipt Date: 20240916
  Transmission Date: 20241017
  Serious: Yes (Other)
  Sender: PFIZER
  Company Number: CA-PFIZER INC-202400222471

PATIENT
  Age: 88 Year
  Sex: Female

DRUGS (1)
  1. RUXIENCE [Suspect]
     Active Substance: RITUXIMAB-PVVR
     Indication: Rheumatoid arthritis
     Dosage: 625 MG, DAY 1 AND 15
     Route: 042
     Dates: start: 20231212

REACTIONS (2)
  - Basal cell carcinoma [Unknown]
  - Off label use [Unknown]
